FAERS Safety Report 7548220-1 (Version None)
Quarter: 2011Q2

REPORT INFORMATION
  Report Type: 
  Country: None (occurrence: None)
  Receive Date: 20110615
  Receipt Date: 20110603
  Transmission Date: 20111010
  Serious: Yes (Other)
  Sender: FDA-Public Use
  Company Number: US-BAYER-201026013NA

PATIENT
  Age: 32 Year
  Sex: Female
  Weight: 53.061 kg

DRUGS (1)
  1. MIRENA [Suspect]
     Indication: CONTRACEPTION
     Dosage: FREQUENCY: CONTINUOUS
     Route: 015
     Dates: start: 20100616, end: 20100616

REACTIONS (2)
  - UTERINE PERFORATION [None]
  - DEVICE EXPULSION [None]
